FAERS Safety Report 25251854 (Version 1)
Quarter: 2025Q2

REPORT INFORMATION
  Report Type: Spontaneous
  Country: US (occurrence: None)
  Receive Date: 20250429
  Receipt Date: 20250429
  Transmission Date: 20250716
  Serious: Yes (Life-Threatening, Hospitalization)
  Sender: FDA-CTU
  Company Number: None

PATIENT
  Age: 62 Year
  Sex: Male
  Weight: 108 kg

DRUGS (6)
  1. MOUNJARO [Suspect]
     Active Substance: TIRZEPATIDE
     Indication: Diabetes mellitus
     Dosage: 1 INJECTION DAILY SUBCUTANEOUS
     Route: 058
     Dates: start: 20240828, end: 20240828
  2. DEVICE [Concomitant]
     Active Substance: DEVICE
  3. COMBIGAN [Concomitant]
     Active Substance: BRIMONIDINE TARTRATE\TIMOLOL MALEATE
  4. ROCKLATAN [Concomitant]
     Active Substance: LATANOPROST\NETARSUDIL MESYLATE
  5. TRAMADOL [Concomitant]
     Active Substance: TRAMADOL
  6. Pantraprosal [Concomitant]

REACTIONS (5)
  - Abdominal discomfort [None]
  - Vomiting [None]
  - Feeling cold [None]
  - Thrombosis [None]
  - Pulmonary embolism [None]

NARRATIVE: CASE EVENT DATE: 20240831
